FAERS Safety Report 7577805-1 (Version None)
Quarter: 2011Q2

REPORT INFORMATION
  Report Type: 
  Country: None (occurrence: None)
  Receive Date: 20110628
  Receipt Date: 20110615
  Transmission Date: 20111010
  Serious: Yes (Hospitalization, Other)
  Sender: FDA-Public Use
  Company Number: PHHY2011JP50463

PATIENT
  Age: 69 Year
  Sex: Male

DRUGS (3)
  1. DICLOFENAC SODIUM [Suspect]
     Indication: PAIN
     Dosage: UNK
     Route: 048
  2. ELENTAL [Concomitant]
     Route: 048
  3. LANSOPRAZOLE [Concomitant]
     Dosage: UNK
     Route: 048

REACTIONS (6)
  - PAIN [None]
  - COLITIS COLLAGENOUS [None]
  - ULCER [None]
  - DECREASED APPETITE [None]
  - WEIGHT DECREASED [None]
  - DIARRHOEA [None]
